FAERS Safety Report 7522458-1 (Version None)
Quarter: 2011Q2

REPORT INFORMATION
  Report Type: 
  Country: None (occurrence: None)
  Receive Date: 20110603
  Receipt Date: 20110524
  Transmission Date: 20111010
  Serious: Yes (Hospitalization)
  Sender: FDA-Public Use
  Company Number: US-ROCHE-779131

PATIENT
  Sex: Male
  Weight: 100.8 kg

DRUGS (17)
  1. COMPAZINE [Concomitant]
     Dosage: REPORTED AS COMPAZINO
  2. GLYBURIDE [Concomitant]
  3. LANTUS [Concomitant]
     Dosage: REPORTED AS LANTUS SOLOSTAR PEN
  4. PERCOCET [Concomitant]
  5. OXALIPLATIN [Suspect]
     Indication: OESOPHAGEAL CANCER METASTATIC
     Route: 065
     Dates: start: 20110517, end: 20110517
  6. DECADRON [Concomitant]
  7. LISINOPRIL [Concomitant]
  8. LOMOTIL [Concomitant]
  9. PRILOSEC [Concomitant]
  10. EMLA [Concomitant]
  11. BEVACIZUMAB [Suspect]
     Indication: OESOPHAGEAL CANCER METASTATIC
     Route: 065
     Dates: start: 20110517, end: 20110517
  12. XANAX [Concomitant]
  13. ZOFRAN [Concomitant]
  14. TRASTUZUMAB [Suspect]
     Indication: OESOPHAGEAL CANCER METASTATIC
     Route: 065
     Dates: start: 20110510, end: 20110517
  15. CAPECITABINE [Suspect]
     Indication: OESOPHAGEAL CANCER METASTATIC
     Dosage: DOSE FREQUENCY:1 PER 2 WEEKS ON AND 1 OFF
     Route: 065
     Dates: start: 20110517, end: 20110523
  16. ACTOS [Concomitant]
  17. CRESTOR [Concomitant]

REACTIONS (3)
  - HYPERTENSION [None]
  - CHEST PAIN [None]
  - PULMONARY EMBOLISM [None]
